FAERS Safety Report 17403326 (Version 2)
Quarter: 2020Q1

REPORT INFORMATION
  Report Type: Spontaneous
  Country: US (occurrence: US)
  Receive Date: 20200211
  Receipt Date: 20200324
  Transmission Date: 20200409
  Serious: Yes (Hospitalization)
  Sender: FDA-Public Use
  Company Number: US-WEST THERAPEUTIC DEVELOPMENT-2020WTD00005

PATIENT
  Age: 38 Year
  Sex: Female

DRUGS (8)
  1. SYNTHROID [Concomitant]
     Active Substance: LEVOTHYROXINE SODIUM
     Dosage: 112 ?G, 1X/DAY IN THE MORNING
  2. ALLEGRA-D [Concomitant]
     Active Substance: FEXOFENADINE\PSEUDOEPHEDRINE
  3. LIDODERM [Concomitant]
     Active Substance: LIDOCAINE
  4. LAZANDA [Suspect]
     Active Substance: FENTANYL CITRATE
     Indication: BREAKTHROUGH PAIN
     Dosage: 100 ?G, 6X/DAY (EVERY 4 HOURS)
     Dates: start: 201907, end: 201907
  5. PRENATAL VITAMIN [Concomitant]
     Active Substance: VITAMINS
  6. LAZANDA [Suspect]
     Active Substance: FENTANYL CITRATE
     Indication: CANCER PAIN
  7. ALPRAZOLAM. [Concomitant]
     Active Substance: ALPRAZOLAM
     Dosage: UNK, AS NEEDED
  8. MORPHINE [Concomitant]
     Active Substance: MORPHINE
     Dosage: ^AROUND THE CLOCK^

REACTIONS (8)
  - Malaise [Unknown]
  - Speech disorder [Unknown]
  - Bile duct obstruction [Unknown]
  - Pancreatic carcinoma metastatic [Not Recovered/Not Resolved]
  - Drug ineffective [Recovered/Resolved]
  - Stress [Not Recovered/Not Resolved]
  - Epistaxis [Recovered/Resolved]
  - Agitation [Unknown]

NARRATIVE: CASE EVENT DATE: 201907
